FAERS Safety Report 13351830 (Version 1)
Quarter: 2017Q1

REPORT INFORMATION
  Report Type: Report from Study
  Country: None (occurrence: US)
  Receive Date: 20170320
  Receipt Date: 20170320
  Transmission Date: 20170429
  Serious: Yes (Hospitalization, Other)
  Sender: FDA-Public Use
  Company Number: US-ABBVIE-17K-163-1904481-00

PATIENT
  Sex: Female

DRUGS (2)
  1. HUMIRA [Suspect]
     Active Substance: ADALIMUMAB
     Indication: CROHN^S DISEASE
     Route: 058
     Dates: end: 2015
  2. HUMIRA [Suspect]
     Active Substance: ADALIMUMAB
     Indication: PSORIATIC ARTHROPATHY

REACTIONS (9)
  - Systemic lupus erythematosus [Unknown]
  - Pain in extremity [Recovering/Resolving]
  - Psoriatic arthropathy [Unknown]
  - Crohn^s disease [Unknown]
  - Peripheral swelling [Recovering/Resolving]
  - Constipation [Not Recovered/Not Resolved]
  - Malnutrition [Not Recovered/Not Resolved]
  - Diarrhoea haemorrhagic [Recovering/Resolving]
  - Nail discolouration [Unknown]

NARRATIVE: CASE EVENT DATE: 2016
